FAERS Safety Report 18820163 (Version 1)
Quarter: 2021Q1

REPORT INFORMATION
  Report Type: Spontaneous
  Country: US (occurrence: US)
  Receive Date: 20210201
  Receipt Date: 20210201
  Transmission Date: 20210419
  Serious: Yes (Hospitalization)
  Sender: FDA-Public Use
  Company Number: None

PATIENT
  Age: 51 Year
  Sex: Male
  Weight: 86.2 kg

DRUGS (1)
  1. BAMLANIVIMAB. [Suspect]
     Active Substance: BAMLANIVIMAB
     Indication: COVID-19
     Route: 041

REACTIONS (6)
  - Oxygen saturation decreased [None]
  - Lung infiltration [None]
  - Condition aggravated [None]
  - Dyspnoea [None]
  - Body temperature increased [None]
  - Insomnia [None]

NARRATIVE: CASE EVENT DATE: 20210131
